FAERS Safety Report 5121608-4 (Version None)
Quarter: 2006Q4

REPORT INFORMATION
  Report Type: 
  Country: None (occurrence: None)
  Receive Date: 20061006
  Receipt Date: 20060927
  Transmission Date: 20070319
  Serious: Yes (Other)
  Sender: FDA-Public Use
  Company Number: NZ-AVENTIS-200620150GDDC

PATIENT
  Age: 68 Year
  Sex: Female

DRUGS (2)
  1. ARAVA [Suspect]
     Indication: RHEUMATOID ARTHRITIS
     Dosage: DOSE: UNK
     Route: 048
     Dates: start: 20020914
  2. HUMIRA [Concomitant]
     Dosage: DOSE: UNK
     Dates: start: 20060201, end: 20060701

REACTIONS (1)
  - CEREBROVASCULAR ACCIDENT [None]
